FAERS Safety Report 9298677 (Version 2)
Quarter: 2013Q2

REPORT INFORMATION
  Report Type: Spontaneous
  Country: FR (occurrence: FR)
  Receive Date: 20130517
  Receipt Date: 20130517
  Transmission Date: 20140414
  Serious: Yes (Other)
  Sender: FDA-Public Use
  Company Number: FR-PR/990617/168

PATIENT
  Age: 27 Year
  Sex: Female

DRUGS (3)
  1. SUBUTEX [Suspect]
     Indication: PRODUCT USED FOR UNKNOWN INDICATION
     Route: 042
  2. ROHYPNOL (FLUNITRAZEPAM) [Suspect]
     Indication: PRODUCT USED FOR UNKNOWN INDICATION
     Dosage: DOSING DETAILS UNKNOWN
     Route: 048
  3. PRAXINOR (THEODRENALINE + CAFEDRINE) [Suspect]
     Indication: PRODUCT USED FOR UNKNOWN INDICATION
     Dosage: DOSING DETAILS UNKNOWN
     Route: 048

REACTIONS (6)
  - Abortion spontaneous [Recovered/Resolved]
  - Cleft lip [Recovered/Resolved]
  - Foetal growth restriction [Recovered/Resolved]
  - Exposure during pregnancy [Recovered/Resolved]
  - Intentional drug misuse [Unknown]
  - Amniotic cavity disorder [Recovered/Resolved]
